FAERS Safety Report 13950563 (Version 1)
Quarter: 2017Q3

REPORT INFORMATION
  Report Type: Spontaneous
  Country: US (occurrence: US)
  Receive Date: 20170908
  Receipt Date: 20170908
  Transmission Date: 20171128
  Serious: No
  Sender: FDA-Public Use
  Company Number: US-ROCHE-1131062

PATIENT
  Sex: Male

DRUGS (3)
  1. RITUXAN [Suspect]
     Active Substance: RITUXIMAB
     Indication: CHRONIC LYMPHOCYTIC LEUKAEMIA
     Route: 065
  2. ENTEX (UNITED STATES) [Concomitant]
     Route: 065
  3. AUGMENTIN [Concomitant]
     Active Substance: AMOXICILLIN\CLAVULANATE POTASSIUM
     Route: 065

REACTIONS (10)
  - Epistaxis [Unknown]
  - Dysphagia [Unknown]
  - Tinnitus [Unknown]
  - Wheezing [Unknown]
  - Dyspnoea [Unknown]
  - Emphysema [Unknown]
  - Pain in extremity [Unknown]
  - Early satiety [Unknown]
  - Hypoaesthesia [Unknown]
  - Cough [Unknown]
